FAERS Safety Report 9118321 (Version 1)
Quarter: 2013Q1

REPORT INFORMATION
  Report Type: Spontaneous
  Country: US (occurrence: None)
  Receive Date: 20130221
  Receipt Date: 20130221
  Transmission Date: 20140127
  Serious: Yes (Hospitalization, Other)
  Sender: FDA-Public Use
  Company Number: None

PATIENT
  Age: 26 Year
  Sex: Female

DRUGS (1)
  1. MIRENA IUD BAYER [Suspect]
     Indication: TOXICITY TO VARIOUS AGENTS
     Dates: start: 20100301, end: 20130206

REACTIONS (9)
  - Convulsion [None]
  - Loss of libido [None]
  - Pelvic pain [None]
  - Dyspareunia [None]
  - Migraine [None]
  - Neck pain [None]
  - Back pain [None]
  - Arthralgia [None]
  - Diarrhoea [None]
